FAERS Safety Report 9167572 (Version 5)
Quarter: 2014Q1

REPORT INFORMATION
  Report Type: Report from Study
  Country: US (occurrence: US)
  Receive Date: 20130318
  Receipt Date: 20140214
  Transmission Date: 20141002
  Serious: Yes (Life-Threatening, Hospitalization)
  Sender: FDA-Public Use
  Company Number: US-JNJFOC-20130306614

PATIENT
  Age: 17 Year
  Sex: Female
  Weight: 58.5 kg

DRUGS (2)
  1. REMICADE [Suspect]
     Indication: INFLAMMATORY BOWEL DISEASE
     Route: 042
     Dates: start: 20080530
  2. PROBIOTICS [Concomitant]
     Route: 065

REACTIONS (1)
  - Meningitis meningococcal [Recovered/Resolved]
